FAERS Safety Report 8790044 (Version 2)
Quarter: 2013Q2

REPORT INFORMATION
  Report Type: Report from Study
  Country: JP (occurrence: JP)
  Receive Date: 20120917
  Receipt Date: 20130528
  Transmission Date: 20140414
  Serious: Yes (Disabling, Other)
  Sender: FDA-Public Use
  Company Number: JP-VERTEX PHARMACEUTICAL INC.-AE-2012-008220

PATIENT
  Age: 35 Year
  Sex: Female

DRUGS (20)
  1. VX-950 (TELAPREVIR) [Suspect]
     Indication: CHRONIC HEPATITIS C
     Dosage: 2250 MG, QD
     Route: 048
     Dates: start: 20120409, end: 20120413
  2. VX-950 (TELAPREVIR) [Suspect]
     Dosage: 1500 MG
     Route: 048
     Dates: start: 20120414, end: 20120501
  3. VX-950 (TELAPREVIR) [Suspect]
     Dosage: 2250 MG, QD
     Dates: start: 20120502, end: 20120508
  4. VX-950 (TELAPREVIR) [Suspect]
     Dosage: 2250 MG, QD
     Route: 048
     Dates: start: 20120526, end: 20120604
  5. VX-950 (TELAPREVIR) [Suspect]
     Dosage: 1500 MG, QD
     Route: 048
     Dates: start: 20120605, end: 20120605
  6. REBETOL [Suspect]
     Indication: CHRONIC HEPATITIS C
     Dosage: 600 MG, QD
     Route: 048
     Dates: start: 20120409, end: 20120508
  7. REBETOL [Suspect]
     Dosage: 400 MG, QD
     Route: 048
     Dates: start: 20120526, end: 20120605
  8. PEGINTRON [Suspect]
     Indication: CHRONIC HEPATITIS C
     Dosage: 1.5 ?G/KG, QW
     Route: 058
     Dates: start: 20120409, end: 20120409
  9. PEGINTRON [Suspect]
     Dosage: 0.75 ?G/KG, QW
     Route: 058
     Dates: start: 20120416, end: 20120501
  10. PEGINTRON [Suspect]
     Dosage: 1.5 ?G/KG, QW
     Route: 058
     Dates: start: 20120507, end: 20120507
  11. PEGINTRON [Suspect]
     Dosage: 50 ?G, QW
     Route: 058
     Dates: start: 20120526, end: 20120604
  12. SHAKUYAKUKANZOTO [Concomitant]
     Route: 048
     Dates: end: 20120508
  13. LAC B [Concomitant]
     Dosage: 3 G, QD
     Route: 048
     Dates: end: 20120508
  14. LAC B [Concomitant]
     Dosage: 3 G, QD
     Route: 048
     Dates: start: 20120606, end: 20120620
  15. THREENOFEN [Concomitant]
     Dosage: 60 MG, QD/PRN
     Route: 048
     Dates: start: 20120524, end: 20120620
  16. EVAMYL [Concomitant]
     Dosage: 1 MG, QD/PRN
     Route: 048
     Dates: start: 20120526
  17. EVAMYL [Concomitant]
     Dosage: 1 MG, QD
     Route: 048
     Dates: end: 20120716
  18. PRIMPERAN [Concomitant]
     Dosage: 15 MG, QD
     Route: 048
     Dates: start: 20120526, end: 20120620
  19. SALOBEL [Concomitant]
     Dosage: 200 MG, QD
     Route: 048
     Dates: start: 20120526, end: 20120620
  20. CRAVIT [Concomitant]
     Dosage: 500 MG, QD
     Route: 048
     Dates: start: 20120608, end: 20120613

REACTIONS (5)
  - Neutrophil count decreased [Not Recovered/Not Resolved]
  - White blood cell count decreased [Not Recovered/Not Resolved]
  - Pancytopenia [Recovered/Resolved]
  - Neutrophil count decreased [Recovered/Resolved]
  - Haemoglobin decreased [Recovered/Resolved]
